FAERS Safety Report 5983671-8 (Version None)
Quarter: 2008Q4

REPORT INFORMATION
  Report Type: 
  Country: None (occurrence: None)
  Receive Date: 20081205
  Receipt Date: 20081205
  Transmission Date: 20090506
  Serious: Yes (Hospitalization)
  Sender: FDA-Public Use
  Company Number: None

PATIENT
  Sex: Male
  Weight: 50.8 kg

DRUGS (3)
  1. MERCAPTOPURINE [Suspect]
     Dosage: 37.5 MG
  2. METHOTREXATE [Suspect]
     Dosage: 7715 MG
  3. VINCRISTINE SULFATE [Suspect]
     Dosage: 2 MG

REACTIONS (5)
  - CEREBRAL INFARCTION [None]
  - DYSPHAGIA [None]
  - FACIAL NERVE DISORDER [None]
  - NAUSEA [None]
  - VOMITING [None]
